FAERS Safety Report 8738362 (Version 2)
Quarter: 2012Q4

REPORT INFORMATION
  Report Type: 
  Country: US (occurrence: US)
  Receive Date: 20120823
  Receipt Date: 20120904
  Transmission Date: 20130627
  Serious: No
  Sender: FDA-Public Use
  Company Number: US-009507513-1207USA012351

PATIENT

DRUGS (1)
  1. NEXPLANON [Suspect]
     Dosage: 68 mg/ 3 year implant
     Route: 059
     Dates: start: 20120725

REACTIONS (3)
  - Device difficult to use [Recovered/Resolved]
  - No adverse event [Unknown]
  - Product quality issue [None]
